FAERS Safety Report 5302129-2 (Version None)
Quarter: 2007Q2

REPORT INFORMATION
  Report Type: 
  Country: None (occurrence: None)
  Receive Date: 20070419
  Receipt Date: 20070413
  Transmission Date: 20071010
  Serious: Yes (Other)
  Sender: FDA-Public Use
  Company Number: DE-GLAXOSMITHKLINE-D0052927A

PATIENT
  Age: 69 Year
  Sex: Female

DRUGS (1)
  1. AVANDAMET [Suspect]
     Dosage: 1002MG UNKNOWN
     Route: 048
     Dates: start: 20070316, end: 20070329

REACTIONS (3)
  - HYPOGLYCAEMIA [None]
  - RESTLESSNESS [None]
  - TREMOR [None]
